FAERS Safety Report 13996695 (Version 1)
Quarter: 2017Q3

REPORT INFORMATION
  Report Type: Spontaneous
  Country: US (occurrence: US)
  Receive Date: 20170921
  Receipt Date: 20170921
  Transmission Date: 20171128
  Serious: No
  Sender: FDA-Public Use
  Company Number: US-ALLERGAN-1729785US

PATIENT

DRUGS (1)
  1. VIBERZI [Suspect]
     Active Substance: ELUXADOLINE
     Indication: IRRITABLE BOWEL SYNDROME
     Route: 065

REACTIONS (9)
  - Vomiting [Unknown]
  - Vision blurred [Unknown]
  - Diarrhoea [Unknown]
  - Migraine [Unknown]
  - Hepatic pain [Unknown]
  - Abdominal pain upper [Unknown]
  - Back pain [Unknown]
  - Abdominal distension [Unknown]
  - Rectal haemorrhage [Unknown]
